FAERS Safety Report 7974412-3 (Version None)
Quarter: 2011Q4

REPORT INFORMATION
  Report Type: 
  Country: None (occurrence: None)
  Receive Date: 20111213
  Receipt Date: 20111207
  Transmission Date: 20120403
  Serious: Yes (Hospitalization)
  Sender: FDA-Public Use
  Company Number: DE-AMGEN-DEUSP2011062203

PATIENT
  Age: 85 Year
  Sex: Female
  Weight: 65 kg

DRUGS (2)
  1. DEKRISTOL [Concomitant]
     Dosage: UNK UNK, QWK
  2. PROLIA [Suspect]
     Indication: OSTEOPOROSIS
     Dosage: UNK
     Dates: start: 20110215, end: 20110823

REACTIONS (3)
  - WRIST FRACTURE [None]
  - OSTEOPOROTIC FRACTURE [None]
  - FALL [None]
